FAERS Safety Report 7001091-4 (Version None)
Quarter: 2010Q3

REPORT INFORMATION
  Report Type: 
  Country: None (occurrence: None)
  Receive Date: 20100920
  Receipt Date: 20100906
  Transmission Date: 20110219
  Serious: Yes (Hospitalization)
  Sender: FDA-Public Use
  Company Number: JP-SHIRE-SPV1-2010-01551

PATIENT
  Sex: Female

DRUGS (13)
  1. LANTHANUM CARBONATE [Suspect]
     Indication: HYPERPHOSPHATAEMIA
     Route: 048
     Dates: start: 20090718
  2. CALCIUM CARBONATE [Concomitant]
     Indication: HYPERPHOSPHATAEMIA
     Dosage: 4500 MG, UNKNOWN
     Route: 048
     Dates: start: 20090718
  3. CALCIUM CARBONATE [Concomitant]
     Dosage: 3000 MG, UNKNOWN
     Route: 048
     Dates: start: 20090818, end: 20091001
  4. CALCIUM CARBONATE [Concomitant]
     Dosage: 1500 MG, UNKNOWN
     Route: 048
     Dates: start: 20091008
  5. OXAROL [Concomitant]
     Dosage: 5 UG, UNKNOWN
     Route: 042
     Dates: start: 20040720
  6. PLETAL [Concomitant]
     Dosage: 200 MG, UNKNOWN
     Route: 048
     Dates: start: 20030218
  7. LAC B [Concomitant]
     Dosage: 2 G, UNKNOWN
     Route: 048
     Dates: start: 20030218
  8. MUCOSTA [Concomitant]
     Dosage: 300 MG, UNKNOWN
     Route: 048
     Dates: start: 20030218
  9. ACINON [Concomitant]
     Dosage: 150 MG, UNKNOWN
     Route: 048
     Dates: start: 20030218
  10. METHYCOBAL [Concomitant]
     Dosage: 1500 UG, UNKNOWN
     Route: 048
     Dates: start: 20060810
  11. ALOSITOL [Concomitant]
     Dosage: 100MG DAILY
     Route: 048
     Dates: start: 20080426
  12. MICARDIS [Concomitant]
     Dosage: 40 MG, UNKNOWN
     Route: 048
     Dates: start: 20090912
  13. RISUMIC [Concomitant]
     Indication: PROCEDURAL HYPOTENSION
     Dosage: 10 MG, UNKNOWN
     Route: 048

REACTIONS (14)
  - BACK PAIN [None]
  - CERVICOBRACHIAL SYNDROME [None]
  - CONSTIPATION [None]
  - COUGH [None]
  - DIARRHOEA [None]
  - EYE PRURITUS [None]
  - HYPERTENSION [None]
  - INSOMNIA [None]
  - LABILE HYPERTENSION [None]
  - NASOPHARYNGITIS [None]
  - NECK PAIN [None]
  - PAIN [None]
  - PERITONITIS [None]
  - PRODUCTIVE COUGH [None]
